FAERS Safety Report 7148733-0 (Version None)
Quarter: 2010Q4

REPORT INFORMATION
  Report Type: 
  Country: None (occurrence: None)
  Receive Date: 20101209
  Receipt Date: 20101110
  Transmission Date: 20110411
  Serious: Yes (Other)
  Sender: FDA-Public Use
  Company Number: US-ROCHE-746702

PATIENT

DRUGS (2)
  1. ALEVE (CAPLET) [Suspect]
     Indication: TOOTHACHE
     Dosage: REPORTED AS ^ALEVE GELCAP^.  FORM: CAPSULE, HARD
     Route: 048
     Dates: start: 20101109, end: 20101101
  2. ETHANOL [Interacting]
     Route: 065
     Dates: start: 20101109

REACTIONS (3)
  - ALCOHOL INTERACTION [None]
  - OVERDOSE [None]
  - SOMNAMBULISM [None]
